FAERS Safety Report 8422046-9 (Version None)
Quarter: 2012Q2

REPORT INFORMATION
  Report Type: 
  Country: None (occurrence: None)
  Receive Date: 20120608
  Receipt Date: 20120511
  Transmission Date: 20120825
  Serious: No
  Sender: FDA-Public Use
  Company Number: US-BAYER-2012-047613

PATIENT

DRUGS (4)
  1. IBUPROFEN [Suspect]
     Indication: DYSMENORRHOEA
  2. IBUPROFEN [Suspect]
     Indication: HEADACHE
     Dosage: 4 DF, UNK
  3. ALEVE (CAPLET) [Suspect]
     Indication: HEADACHE
     Dosage: 4 DF, UNK
  4. ALEVE (CAPLET) [Suspect]
     Indication: DYSMENORRHOEA

REACTIONS (1)
  - NO ADVERSE EVENT [None]
